FAERS Safety Report 5434322-2 (Version None)
Quarter: 2007Q3

REPORT INFORMATION
  Report Type: 
  Country: None (occurrence: None)
  Receive Date: 20070829
  Receipt Date: 20070820
  Transmission Date: 20080115
  Serious: Yes (Death, Other)
  Sender: FDA-Public Use
  Company Number: 160171ISR

PATIENT
  Age: 56 Year
  Sex: Male

DRUGS (2)
  1. GABAPENTIN [Suspect]
     Indication: NEURALGIA
     Dosage: 2700 MG (900 MG, 3 IN 1 D)
     Route: 048
  2. OXYCODONE HCL [Suspect]
     Indication: NEURALGIA
     Dosage: (100 MG, AS REQUIRED)

REACTIONS (3)
  - CONFUSIONAL STATE [None]
  - DRUG INTERACTION [None]
  - NEUROTOXICITY [None]
